FAERS Safety Report 4559036-2 (Version None)
Quarter: 2005Q1

REPORT INFORMATION
  Report Type: 
  Country: None (occurrence: None)
  Receive Date: 20050124
  Receipt Date: 20050111
  Transmission Date: 20050727
  Serious: Yes (Hospitalization)
  Sender: FDA-Public Use
  Company Number: FR-JNJFOC-20041205269

PATIENT
  Age: 48 Year
  Sex: Female

DRUGS (9)
  1. REMICADE [Suspect]
     Dosage: 7TH INFUSION ADMINISTERED
     Route: 042
  2. REMICADE [Suspect]
     Indication: RHEUMATOID ARTHRITIS
     Dosage: 6 INFUSIONS ADMINISTERED
     Route: 042
  3. CORTANCYL [Concomitant]
  4. METHOTREXATE [Concomitant]
  5. MYOLASTAN [Concomitant]
  6. TRANXENE [Concomitant]
  7. SPECIAFOLDINE [Concomitant]
  8. CACIT VIT D3 [Concomitant]
  9. CACIT VIT D3 [Concomitant]

REACTIONS (3)
  - PLEURISY [None]
  - SCIATICA [None]
  - TUBERCULOSIS [None]
